FAERS Safety Report 5028959-2 (Version None)
Quarter: 2006Q2

REPORT INFORMATION
  Report Type: 
  Country: None (occurrence: None)
  Receive Date: 20060501
  Receipt Date: 20060106
  Transmission Date: 20061013
  Serious: No
  Sender: FDA-Public Use
  Company Number: 200610203US

PATIENT
  Sex: Female

DRUGS (1)
  1. KETEK [Suspect]
     Dosage: 800 MG

REACTIONS (3)
  - FEELING HOT [None]
  - FLUSHING [None]
  - NAUSEA [None]
